FAERS Safety Report 11745215 (Version 1)
Quarter: 2015Q4

REPORT INFORMATION
  Report Type: Other
  Country: RS (occurrence: RS)
  Receive Date: 20151117
  Receipt Date: 20151117
  Transmission Date: 20160304
  Serious: Yes (Hospitalization)
  Sender: FDA-Public Use
  Company Number: RS-DEXPHARM-20152115

PATIENT
  Age: 49 Year
  Sex: Female

DRUGS (2)
  1. AKTOVEGIN [Concomitant]
     Dates: start: 20100504, end: 20100509
  2. DIKLOFENAK I.M. [Suspect]
     Active Substance: DICLOFENAC
     Route: 030
     Dates: end: 20100504

REACTIONS (3)
  - Injection site extravasation [Unknown]
  - Skin necrosis [Unknown]
  - Pain [None]

NARRATIVE: CASE EVENT DATE: 20100504
